FAERS Safety Report 16635019 (Version 1)
Quarter: 2019Q3

REPORT INFORMATION
  Report Type: Spontaneous
  Country: US (occurrence: US)
  Receive Date: 20190726
  Receipt Date: 20190726
  Transmission Date: 20191004
  Serious: No
  Sender: FDA-Public Use
  Company Number: US-EMMAUS MEDICAL, INC.-EMM201903-000098

PATIENT
  Sex: Female

DRUGS (3)
  1. ENDARI [Suspect]
     Active Substance: GLUTAMINE
     Indication: SICKLE CELL DISEASE
     Route: 048
     Dates: start: 201806
  2. ENDARI [Suspect]
     Active Substance: GLUTAMINE
     Dosage: 3 CAPSULES
     Route: 048
  3. ENDARI [Suspect]
     Active Substance: GLUTAMINE
     Route: 048

REACTIONS (3)
  - Tinnitus [Unknown]
  - Oedema [Unknown]
  - Joint swelling [Unknown]

NARRATIVE: CASE EVENT DATE: 201806
